FAERS Safety Report 8444273-7 (Version None)
Quarter: 2012Q2

REPORT INFORMATION
  Report Type: 
  Country: None (occurrence: None)
  Receive Date: 20120618
  Receipt Date: 20120613
  Transmission Date: 20120825
  Serious: Yes (Hospitalization, Other)
  Sender: FDA-Public Use
  Company Number: CA-PFIZER INC-2012136156

PATIENT
  Age: 59 Year
  Sex: Male
  Weight: 70 kg

DRUGS (5)
  1. HYDROMORPHONE HCL [Concomitant]
     Dosage: UNK
     Dates: start: 20120501
  2. AXITINIB [Suspect]
     Indication: RENAL CANCER METASTATIC
     Dosage: 5 MG, 2X/DAY
     Route: 048
     Dates: start: 20120516
  3. ALLOPURINOL [Concomitant]
     Dosage: UNK
  4. DENOSUMAB [Concomitant]
     Dosage: 120 MG, MONTHLY
     Dates: start: 20120401
  5. ZANTAC [Concomitant]
     Dosage: UNK

REACTIONS (1)
  - CARDIAC FAILURE CONGESTIVE [None]
